FAERS Safety Report 15425929 (Version 2)
Quarter: 2018Q4

REPORT INFORMATION
  Report Type: Spontaneous
  Country: ES (occurrence: ES)
  Receive Date: 20180925
  Receipt Date: 20181219
  Transmission Date: 20190204
  Serious: Yes (Hospitalization, Other)
  Sender: FDA-Public Use
  Company Number: ES-PFIZER INC-2018380419

PATIENT
  Age: 38 Year
  Sex: Female
  Weight: 63 kg

DRUGS (7)
  1. HERCEPTIN [Suspect]
     Active Substance: TRASTUZUMAB
     Dosage: 8 MG/KG, SINGLE (LOADING DOSE)
     Route: 042
     Dates: start: 20170223
  2. PERJETA [Suspect]
     Active Substance: PERTUZUMAB
     Dosage: 840 MG, SINGLE (LOADING DOSE)
     Route: 042
     Dates: start: 20170223
  3. CYCLOPHOSPHAMIDE. [Suspect]
     Active Substance: CYCLOPHOSPHAMIDE
     Indication: HER-2 POSITIVE BREAST CANCER
     Dosage: 600 MG/M2, EVERY 3 WEEKS
     Route: 042
     Dates: start: 20161123, end: 20170125
  4. HERCEPTIN [Suspect]
     Active Substance: TRASTUZUMAB
     Indication: HER-2 POSITIVE BREAST CANCER
     Dosage: 6 MG/KG, EVERY 3 WEEKS (RECEIVED 3 CYCLESMAINTAINANCE DOSE)
     Route: 042
     Dates: end: 201704
  5. PERJETA [Suspect]
     Active Substance: PERTUZUMAB
     Indication: HER-2 POSITIVE BREAST CANCER
     Dosage: 420 MG, EVERY 3 WEEKS (RECEIVED 3 CYCLESMAINTAINANCE DOSE)
     Route: 042
     Dates: end: 201704
  6. DOXORUBICIN HCL [Suspect]
     Active Substance: DOXORUBICIN HYDROCHLORIDE
     Indication: HER-2 POSITIVE BREAST CANCER
     Dosage: 60 MG/M2, EVERY 3 WEEKS
     Route: 042
     Dates: start: 20161123, end: 20170125
  7. TAXOL [Suspect]
     Active Substance: PACLITAXEL
     Indication: HER-2 POSITIVE BREAST CANCER
     Dosage: 80 MG/M2, WEEKLY
     Route: 042
     Dates: start: 20170223, end: 201703

REACTIONS (1)
  - Oligohydramnios [Recovered/Resolved]

NARRATIVE: CASE EVENT DATE: 20170420
